FAERS Safety Report 6573858-8 (Version None)
Quarter: 2010Q1

REPORT INFORMATION
  Report Type: 
  Country: None (occurrence: None)
  Receive Date: 20100204
  Receipt Date: 20100204
  Transmission Date: 20100710
  Serious: Yes (Life-Threatening)
  Sender: FDA-Public Use
  Company Number: None

PATIENT
  Sex: Female
  Weight: 61.2356 kg

DRUGS (2)
  1. AMBIEN [Suspect]
     Indication: INSOMNIA
     Dosage: 5 MG HS PRN P.O.
     Route: 048
     Dates: start: 20100106
  2. AMBIEN [Suspect]
     Indication: PAIN
     Dosage: 5 MG HS PRN P.O.
     Route: 048
     Dates: start: 20100106

REACTIONS (4)
  - ABNORMAL BEHAVIOUR [None]
  - ANXIETY [None]
  - MEMORY IMPAIRMENT [None]
  - MIDDLE INSOMNIA [None]
